FAERS Safety Report 8857518 (Version 1)
Quarter: 2012Q4

REPORT INFORMATION
  Report Type: Report from Study
  Country: US (occurrence: US)
  Receive Date: 20121024
  Receipt Date: 20121024
  Transmission Date: 20130627
  Serious: Yes (Hospitalization)
  Sender: FDA-Public Use
  Company Number: US-GLAXOSMITHKLINE-A0925661A

PATIENT
  Age: 65 Year
  Sex: Male
  Weight: 115 kg

DRUGS (2)
  1. MELPHALAN [Suspect]
     Indication: MULTIPLE MYELOMA
     Dosage: 100MGM2 Unknown
     Route: 042
     Dates: start: 20110307, end: 20110308
  2. LEUKINE [Suspect]
     Indication: MULTIPLE MYELOMA
     Dosage: 600MCG Per day
     Route: 042
     Dates: start: 20110311

REACTIONS (2)
  - Pneumonia [Recovering/Resolving]
  - Hypoxia [Recovering/Resolving]
